FAERS Safety Report 14400841 (Version 1)
Quarter: 2018Q1

REPORT INFORMATION
  Report Type: Report from Study
  Country: MX (occurrence: MX)
  Receive Date: 20180117
  Receipt Date: 20180117
  Transmission Date: 20180509
  Serious: Yes (Other)
  Sender: FDA-Public Use
  Company Number: MX-SUN PHARMACEUTICAL INDUSTRIES LTD-2018RR-160307

PATIENT
  Age: 23 Year
  Sex: Female

DRUGS (14)
  1. PARACETAMOL [Suspect]
     Active Substance: ACETAMINOPHEN
     Indication: VOMITING
  2. FENTANYL. [Suspect]
     Active Substance: FENTANYL
     Indication: GENERAL ANAESTHESIA
     Route: 065
  3. NIFEDIPINE. [Suspect]
     Active Substance: NIFEDIPINE
     Indication: PREMATURE LABOUR
     Route: 065
  4. DESFLURANE. [Suspect]
     Active Substance: DESFLURANE
     Indication: GENERAL ANAESTHESIA
     Dosage: UNK
     Route: 065
  5. BONADOXIN (MECLIZINE\PYRIDOXINE) [Suspect]
     Active Substance: MECLIZINE\PYRIDOXINE
     Indication: PAIN
     Route: 065
  6. BETAMETHASONE. [Suspect]
     Active Substance: BETAMETHASONE
     Indication: MATERNAL THERAPY TO ENHANCE FOETAL LUNG MATURITY
     Route: 065
  7. INDOMETHACIN. [Suspect]
     Active Substance: INDOMETHACIN
     Indication: PREMATURE LABOUR
     Dosage: ADDITIONAL DOSES
     Route: 054
  8. BONADOXIN (MECLIZINE\PYRIDOXINE) [Suspect]
     Active Substance: MECLIZINE\PYRIDOXINE
     Indication: VOMITING
  9. PROPOFOL. [Suspect]
     Active Substance: PROPOFOL
     Indication: GENERAL ANAESTHESIA
     Route: 065
  10. PARACETAMOL [Suspect]
     Active Substance: ACETAMINOPHEN
     Indication: PAIN
     Route: 065
  11. ROCURONIUM [Suspect]
     Active Substance: ROCURONIUM BROMIDE
     Indication: GENERAL ANAESTHESIA
     Route: 065
  12. BONADOXIN (MECLIZINE\PYRIDOXINE) [Suspect]
     Active Substance: MECLIZINE\PYRIDOXINE
     Indication: NAUSEA
  13. PARACETAMOL [Suspect]
     Active Substance: ACETAMINOPHEN
     Indication: NAUSEA
  14. INDOMETHACIN. [Suspect]
     Active Substance: INDOMETHACIN
     Indication: TOCOLYSIS
     Route: 065

REACTIONS (4)
  - Drug ineffective [Unknown]
  - Premature labour [Unknown]
  - Premature delivery [Unknown]
  - Exposure during pregnancy [Unknown]
